FAERS Safety Report 16885080 (Version 3)
Quarter: 2019Q4

REPORT INFORMATION
  Report Type: Spontaneous
  Country: US (occurrence: US)
  Receive Date: 20191004
  Receipt Date: 20191025
  Transmission Date: 20200122
  Serious: No
  Sender: FDA-Public Use
  Company Number: US-PFIZER INC-2019426144

PATIENT
  Age: 82 Year
  Sex: Female
  Weight: 62 kg

DRUGS (3)
  1. SOLU-MEDROL [Suspect]
     Active Substance: METHYLPREDNISOLONE SODIUM SUCCINATE
     Indication: PAIN
  2. SYNTHROID [Concomitant]
     Active Substance: LEVOTHYROXINE SODIUM
     Dosage: 100 UG, UNK
  3. SOLU-MEDROL [Suspect]
     Active Substance: METHYLPREDNISOLONE SODIUM SUCCINATE
     Indication: CONTUSION
     Dosage: UNK
     Route: 042
     Dates: start: 20190923, end: 20190923

REACTIONS (6)
  - Off label use [Unknown]
  - Vulvovaginal burning sensation [Unknown]
  - Anorectal discomfort [Unknown]
  - Nausea [Recovered/Resolved]
  - Pain [Unknown]
  - Product use in unapproved indication [Unknown]

NARRATIVE: CASE EVENT DATE: 2019
